FAERS Safety Report 21365206 (Version 1)
Quarter: 2022Q3

REPORT INFORMATION
  Report Type: Spontaneous
  Country: US (occurrence: None)
  Receive Date: 20220922
  Receipt Date: 20220922
  Transmission Date: 20221027
  Serious: Yes (Life-Threatening, Hospitalization, Disabling, Other)
  Sender: FDA-Public Use
  Company Number: None

PATIENT
  Age: 52 Year
  Sex: Female
  Weight: 66.6 kg

DRUGS (6)
  1. VENLAFAXINE HYDROCHLORIDE [Suspect]
     Active Substance: VENLAFAXINE HYDROCHLORIDE
     Indication: Generalised anxiety disorder
     Route: 048
  2. VITAMIN D3 [Concomitant]
     Active Substance: CHOLECALCIFEROL
  3. GINGER [Concomitant]
     Active Substance: GINGER
  4. HERBALS\TURMERIC [Concomitant]
     Active Substance: HERBALS\TURMERIC
  5. COD LIVER OIL [Concomitant]
     Active Substance: COD LIVER OIL
  6. MAGNESIUM GLYCINATE [Concomitant]

REACTIONS (7)
  - Withdrawal syndrome [None]
  - Psychiatric symptom [None]
  - Nervous system disorder [None]
  - Panic disorder [None]
  - Insomnia [None]
  - Emotional distress [None]
  - Suicidal behaviour [None]

NARRATIVE: CASE EVENT DATE: 20191101
